FAERS Safety Report 9438408 (Version 1)
Quarter: 2013Q3

REPORT INFORMATION
  Report Type: Spontaneous
  Country: US (occurrence: US)
  Receive Date: 20130802
  Receipt Date: 20130802
  Transmission Date: 20140515
  Serious: Yes (Other)
  Sender: FDA-Public Use
  Company Number: US-BRISTOL-MYERS SQUIBB COMPANY-17247784

PATIENT
  Age: 81 Year
  Sex: Female
  Weight: 82.54 kg

DRUGS (2)
  1. COUMADIN [Suspect]
     Indication: EMBOLIC STROKE
     Dosage: 1DF =2.5MG, 5MG?2.5MG-759085, 5MG- 772311
     Dates: start: 201008
  2. SYNTHROID [Concomitant]

REACTIONS (2)
  - Blue toe syndrome [Unknown]
  - Weight increased [Unknown]
